FAERS Safety Report 4667359-1 (Version None)
Quarter: 2005Q2

REPORT INFORMATION
  Report Type: 
  Country: None (occurrence: None)
  Receive Date: 20050519
  Receipt Date: 20050519
  Transmission Date: 20051028
  Serious: No
  Sender: FDA-Public Use
  Company Number: None

PATIENT
  Sex: Male
  Weight: 74.5 kg

DRUGS (2)
  1. GEMCITABINE [Suspect]
     Dosage: 900MG/M2 IV  DAYS 1,8,15 Q 28 DAYS
     Route: 042
     Dates: start: 20050405
  2. CAPECITABINE [Suspect]
     Dosage: 625MG/M2 BID, DAYS 1-21 Q 28 DAYS
     Dates: start: 20050405

REACTIONS (3)
  - CARDIAC TAMPONADE [None]
  - CARDIOMEGALY [None]
  - PERICARDIAL EFFUSION MALIGNANT [None]
